FAERS Safety Report 7138618-8 (Version None)
Quarter: 2010Q4

REPORT INFORMATION
  Report Type: 
  Country: None (occurrence: None)
  Receive Date: 20101206
  Receipt Date: 20101119
  Transmission Date: 20110411
  Serious: Yes (Death)
  Sender: FDA-Public Use
  Company Number: BR-PFIZER INC-2010141138

PATIENT
  Age: 71 Year
  Sex: Female

DRUGS (3)
  1. IBUPROFEN [Suspect]
     Indication: OSTEOARTHRITIS
     Dosage: 600 MG, UNK
     Route: 048
     Dates: start: 20091229, end: 20100817
  2. IBUPROFEN [Suspect]
     Indication: RHEUMATOID ARTHRITIS
  3. NEXIUM [Concomitant]
     Indication: GASTRITIS PROPHYLAXIS
     Dosage: 20 OR 40 MG, DAILY
     Route: 048
     Dates: start: 20091229, end: 20100817

REACTIONS (1)
  - SUDDEN DEATH [None]
